FAERS Safety Report 8197412-X (Version None)
Quarter: 2012Q1

REPORT INFORMATION
  Report Type: 
  Country: None (occurrence: None)
  Receive Date: 20120309
  Receipt Date: 20120302
  Transmission Date: 20120608
  Serious: Yes (Other)
  Sender: FDA-Public Use
  Company Number: BE-JNJFOC-20120300945

PATIENT
  Age: 40 Year
  Sex: Female

DRUGS (2)
  1. XEPLION [Suspect]
     Route: 065
  2. XEPLION [Suspect]
     Indication: PRODUCT USED FOR UNKNOWN INDICATION
     Route: 065

REACTIONS (2)
  - BLOOD PROLACTIN INCREASED [None]
  - DEPRESSION [None]
